FAERS Safety Report 7326322-2 (Version None)
Quarter: 2011Q1

REPORT INFORMATION
  Report Type: 
  Country: None (occurrence: None)
  Receive Date: 20110302
  Receipt Date: 20110221
  Transmission Date: 20110831
  Serious: Yes (Other)
  Sender: FDA-Public Use
  Company Number: B0689195A

PATIENT
  Age: 59 Year
  Sex: Female
  Weight: 55 kg

DRUGS (9)
  1. HYPEN [Concomitant]
     Route: 048
  2. EXCEGRAN [Concomitant]
     Route: 048
  3. NOVAMINE [Concomitant]
     Indication: NAUSEA
     Dosage: 10MG PER DAY
     Route: 048
     Dates: start: 20090722, end: 20101124
  4. TYKERB [Suspect]
     Dosage: 1250MG PER DAY
     Route: 048
     Dates: start: 20101116, end: 20101117
  5. PYDOXAL [Concomitant]
     Dosage: 60MG PER DAY
     Route: 048
     Dates: start: 20101116, end: 20101124
  6. MUCOSTA [Concomitant]
     Route: 048
  7. OXYCONTIN [Concomitant]
     Route: 048
  8. XELODA [Suspect]
     Dosage: 3000MG PER DAY
     Route: 048
     Dates: start: 20101116, end: 20101118
  9. PROTECADIN [Concomitant]
     Route: 048

REACTIONS (6)
  - MOOD ALTERED [None]
  - DEPRESSED MOOD [None]
  - SUICIDAL IDEATION [None]
  - ANXIETY [None]
  - DECREASED APPETITE [None]
  - LISTLESS [None]
